FAERS Safety Report 15840077 (Version 17)
Quarter: 2021Q2

REPORT INFORMATION
  Report Type: Spontaneous
  Country: US (occurrence: US)
  Receive Date: 20190117
  Receipt Date: 20210608
  Transmission Date: 20210716
  Serious: Yes (Hospitalization, Other)
  Sender: FDA-Public Use
  Company Number: US-BIOMARINAP-US-2019-121554

PATIENT
  Age: 20 Month
  Sex: Female

DRUGS (2)
  1. ALDURAZYME [Suspect]
     Active Substance: LARONIDASE
     Indication: MUCOPOLYSACCHARIDOSIS I
     Dosage: 11.6 MILLIGRAM, QW
     Route: 041
     Dates: start: 20181210
  2. ALDURAZYME [Suspect]
     Active Substance: LARONIDASE
     Dosage: 11.60 MILLIGRAM, QOW
     Route: 041

REACTIONS (20)
  - Haemolytic anaemia [Not Recovered/Not Resolved]
  - Red blood cell count decreased [Not Recovered/Not Resolved]
  - Skin ulcer [Not Recovered/Not Resolved]
  - Fatigue [Not Recovered/Not Resolved]
  - Hypersomnia [Unknown]
  - Immune system disorder [Not Recovered/Not Resolved]
  - Insomnia [Not Recovered/Not Resolved]
  - Enzyme level decreased [Unknown]
  - COVID-19 [Recovered/Resolved]
  - Abnormal behaviour [Recovering/Resolving]
  - Sleep disorder [Not Recovered/Not Resolved]
  - Graft versus host disease [Not Recovered/Not Resolved]
  - Product dose omission issue [Unknown]
  - Product use issue [Unknown]
  - Device related infection [Recovering/Resolving]
  - Rhinorrhoea [Unknown]
  - Urinary glycosaminoglycans increased [Unknown]
  - Decreased activity [Recovered/Resolved]
  - Unevaluable event [Unknown]
  - Autism spectrum disorder [Not Recovered/Not Resolved]

NARRATIVE: CASE EVENT DATE: 2020
